FAERS Safety Report 4733556-X (Version None)
Quarter: 2005Q3

REPORT INFORMATION
  Report Type: 
  Country: None (occurrence: None)
  Receive Date: 20050803
  Receipt Date: 20050803
  Transmission Date: 20060218
  Serious: Yes (Other)
  Sender: FDA-Public Use
  Company Number: None

PATIENT
  Age: 47 Year
  Sex: Female
  Weight: 77.1115 kg

DRUGS (4)
  1. CIBA VISION CLEAR CARE CLEANING AND DISINFECTING SOLUTION [Suspect]
     Dosage: 12OZ BOTTLE FOR CLEANING, DISINFECTING
     Dates: start: 20050708
  2. VARIOUS EYE DROPS [Concomitant]
  3. COLD COMPRESSES [Concomitant]
  4. TYLENOL (CAPLET) [Concomitant]

REACTIONS (5)
  - BURNING SENSATION [None]
  - EYE IRRITATION [None]
  - EYE PAIN [None]
  - MEDICATION ERROR [None]
  - OCULAR HYPERAEMIA [None]
